FAERS Safety Report 4901695-6 (Version None)
Quarter: 2006Q1

REPORT INFORMATION
  Report Type: 
  Country: None (occurrence: None)
  Receive Date: 20060206
  Receipt Date: 20051115
  Transmission Date: 20060701
  Serious: No
  Sender: FDA-Public Use
  Company Number: US-BRISTOL-MYERS SQUIBB COMPANY-13181953

PATIENT
  Age: 65 Year
  Sex: Female
  Weight: 79 kg

DRUGS (10)
  1. TAXOL [Suspect]
     Indication: BREAST CANCER
     Route: 042
     Dates: start: 20051027, end: 20051027
  2. CARBOPLATIN [Suspect]
     Indication: BREAST CANCER
     Route: 042
     Dates: start: 20051027, end: 20051027
  3. ZANTAC [Concomitant]
     Indication: PREMEDICATION
     Route: 042
  4. KYTRIL [Concomitant]
     Indication: PREMEDICATION
     Route: 042
  5. PREVACID [Concomitant]
  6. LEXAPRO [Concomitant]
  7. ULTRAM [Concomitant]
  8. VALIUM [Concomitant]
  9. SOMA [Concomitant]
  10. DILTIAZEM HCL [Concomitant]

REACTIONS (2)
  - NEUROPATHY [None]
  - PAIN IN EXTREMITY [None]
